FAERS Safety Report 9871022 (Version 1)
Quarter: 2014Q1

REPORT INFORMATION
  Report Type: Spontaneous
  Country: JP (occurrence: JP)
  Receive Date: 20140205
  Receipt Date: 20140205
  Transmission Date: 20141002
  Serious: Yes (Other)
  Sender: FDA-Public Use
  Company Number: JP-MYLANLABS-2014S1002015

PATIENT
  Age: 45 Year
  Sex: Male

DRUGS (3)
  1. EPINEPHRINE [Suspect]
     Indication: ANAPHYLACTIC REACTION
     Dosage: 0.3 MG, UNK
     Route: 030
  2. CHLORPHENIRAMINE [Concomitant]
     Indication: ANAPHYLACTIC REACTION
     Dosage: 10 MG, UNK
  3. HYDROCORTISONE [Concomitant]
     Indication: ANAPHYLACTIC REACTION
     Dosage: 200 MG, UNK

REACTIONS (2)
  - Incorrect route of drug administration [Unknown]
  - Ventricular tachycardia [Unknown]
